FAERS Safety Report 19426841 (Version 1)
Quarter: 2021Q2

REPORT INFORMATION
  Report Type: Report from Study
  Country: CN (occurrence: CN)
  Receive Date: 20210616
  Receipt Date: 20210616
  Transmission Date: 20210717
  Serious: Yes (Hospitalization, Other)
  Sender: FDA-Public Use
  Company Number: CN-JNJFOC-20210619767

PATIENT
  Age: 69 Year
  Sex: Female
  Weight: 55 kg

DRUGS (8)
  1. AMIVANTAMAB. [Suspect]
     Active Substance: AMIVANTAMAB
     Indication: NON-SMALL CELL LUNG CANCER
     Route: 042
     Dates: start: 20210525, end: 20210601
  2. SODIUM CHLORIDE. [Concomitant]
     Active Substance: SODIUM CHLORIDE
     Indication: HYPONATRAEMIA
     Route: 042
     Dates: start: 20210525, end: 20210526
  3. SODIUM CHLORIDE. [Concomitant]
     Active Substance: SODIUM CHLORIDE
     Route: 042
     Dates: start: 20210601, end: 20210601
  4. AMINOPYRINE [Concomitant]
     Active Substance: AMINOPYRINE
     Indication: HEADACHE
     Route: 048
     Dates: start: 20210527, end: 20210527
  5. PROMETHAZINE HYDROCHLORIDE. [Concomitant]
     Active Substance: PROMETHAZINE HYDROCHLORIDE
     Indication: DIZZINESS
     Route: 058
     Dates: start: 20210525, end: 20210525
  6. ZOLMITRIPTAN. [Concomitant]
     Active Substance: ZOLMITRIPTAN
     Indication: HEADACHE
     Route: 065
     Dates: start: 20210601, end: 20210601
  7. LAZERTINIB. [Suspect]
     Active Substance: LAZERTINIB
     Indication: NON-SMALL CELL LUNG CANCER
     Route: 048
     Dates: start: 20210528, end: 20210604
  8. IBUPROFEN. [Concomitant]
     Active Substance: IBUPROFEN
     Indication: HEADACHE
     Route: 048
     Dates: start: 20210601, end: 20210601

REACTIONS (3)
  - Fatigue [Not Recovered/Not Resolved]
  - Cognitive disorder [Recovered/Resolved]
  - Headache [Not Recovered/Not Resolved]

NARRATIVE: CASE EVENT DATE: 20210604
